FAERS Safety Report 19080355 (Version 2)
Quarter: 2021Q2

REPORT INFORMATION
  Report Type: Spontaneous
  Country: FR (occurrence: FR)
  Receive Date: 20210401
  Receipt Date: 20210619
  Transmission Date: 20210717
  Serious: Yes (Other)
  Sender: FDA-Public Use
  Company Number: FR-AUROBINDO-AUR-APL-2021-012524

PATIENT
  Age: 72 Year
  Sex: Male

DRUGS (4)
  1. SIMVASTATIN. [Suspect]
     Active Substance: SIMVASTATIN
     Indication: PRODUCT USED FOR UNKNOWN INDICATION
     Dosage: 10 MILLIGRAM, ONCE A DAY
     Route: 065
     Dates: start: 20210128
  2. SINTROM [Interacting]
     Active Substance: ACENOCOUMAROL
     Indication: PULMONARY EMBOLISM
     Dosage: SINCE 15 DAYS, THREE QUARTERS OF A TABLET OF 4 MG EXCEPT 2 DAYS PER WEEK TAKES A FULL 4 MG TABLET)
     Route: 065
     Dates: start: 2007
  3. APROVEL [Concomitant]
     Active Substance: IRBESARTAN
     Indication: HYPERTENSION
     Dosage: 1 DOSAGE FORM, ONCE A DAY(1 DF, QD (1 TABLET IN THE EVENINGS)
     Route: 065
  4. EUPRESSYL [Concomitant]
     Active Substance: URAPIDIL
     Indication: HYPERTENSION
     Dosage: 2 DOSAGE FORM, ONCE A DAY (2 CAPSULES, QD)
     Route: 065

REACTIONS (6)
  - Drug effect less than expected [Unknown]
  - Intentional product use issue [Unknown]
  - International normalised ratio fluctuation [Recovering/Resolving]
  - Renal disorder [Recovering/Resolving]
  - Drug interaction [Unknown]
  - Blood creatinine increased [Recovering/Resolving]

NARRATIVE: CASE EVENT DATE: 20210203
